FAERS Safety Report 5859940-9 (Version None)
Quarter: 2008Q3

REPORT INFORMATION
  Report Type: 
  Country: None (occurrence: None)
  Receive Date: 20080827
  Receipt Date: 20080819
  Transmission Date: 20090109
  Serious: Yes (Hospitalization)
  Sender: FDA-Public Use
  Company Number: US-JNJFOC-20060803091

PATIENT
  Sex: Female
  Weight: 98.43 kg

DRUGS (11)
  1. ORTHO EVRA [Suspect]
     Indication: OVARIAN CYST
     Route: 062
  2. EFFEXOR [Concomitant]
     Indication: DRUG USE FOR UNKNOWN INDICATION
  3. SINGULAIR [Concomitant]
     Indication: ASTHMA
  4. PROVENTIL [Concomitant]
     Indication: DRUG USE FOR UNKNOWN INDICATION
  5. PROTONIX [Concomitant]
     Indication: GASTRIC DISORDER
  6. CIPRO [Concomitant]
     Indication: DYSURIA
  7. NORVASC [Concomitant]
     Indication: DRUG USE FOR UNKNOWN INDICATION
  8. ANAPROX [Concomitant]
     Indication: DRUG USE FOR UNKNOWN INDICATION
  9. ADVAIR DISKUS 100/50 [Concomitant]
     Indication: DRUG USE FOR UNKNOWN INDICATION
     Dosage: DOSE 100/50
  10. ZYRTEC [Concomitant]
     Indication: URTICARIA
  11. ATENOLOL [Concomitant]
     Indication: BLOOD PRESSURE

REACTIONS (6)
  - DEEP VEIN THROMBOSIS [None]
  - GALLBLADDER DISORDER [None]
  - OFF LABEL USE [None]
  - PANCREATITIS [None]
  - PULMONARY EMBOLISM [None]
  - SPLENIC INFARCTION [None]
